FAERS Safety Report 9719754 (Version 2)
Quarter: 2013Q4

REPORT INFORMATION
  Report Type: Report from Study
  Country: BR (occurrence: BR)
  Receive Date: 20131128
  Receipt Date: 20131128
  Transmission Date: 20140711
  Serious: Yes (Hospitalization, Other)
  Sender: FDA-Public Use
  Company Number: BR-ROCHE-1270046

PATIENT
  Sex: Female
  Weight: 56 kg

DRUGS (6)
  1. PEGASYS [Suspect]
     Indication: HEPATITIS C
     Route: 065
     Dates: start: 2009, end: 2010
  2. RIBAVIRIN [Suspect]
     Indication: HEPATITIS C
     Dosage: DOSE: 4 TABLETS
     Route: 065
     Dates: start: 2009, end: 2010
  3. DIAZEPAM [Suspect]
     Indication: PRODUCT USED FOR UNKNOWN INDICATION
     Dosage: 10 TABLETS - OVERDOSE
     Route: 065
  4. LEVOZINE (BRAZIL) [Concomitant]
  5. CARBOLITIUM [Concomitant]
  6. CARBAMAZEPINE [Concomitant]

REACTIONS (6)
  - Drug ineffective [Unknown]
  - Anxiety [Unknown]
  - Nervousness [Unknown]
  - Amnesia [Unknown]
  - Suicide attempt [Recovered/Resolved]
  - Mental disorder [Recovered/Resolved]
